FAERS Safety Report 4985738-X (Version None)
Quarter: 2006Q2

REPORT INFORMATION
  Report Type: 
  Country: None (occurrence: None)
  Receive Date: 20060421
  Receipt Date: 20060405
  Transmission Date: 20061013
  Serious: Yes (Other)
  Sender: FDA-Public Use
  Company Number: DE-2006-003147

PATIENT
  Age: 27 Year

DRUGS (3)
  1. BETAFERON (INTERFERON BETA-1B) INJECTION, 250UG [Suspect]
     Indication: RELAPSING-REMITTING MULTIPLE SCLEROSIS
     Dosage: UNK, EVERY 2D, SUBCUTANEOUS
     Route: 058
     Dates: start: 20021108, end: 20021128
  2. FLUOXETIN ^BIOCHEMIE^ (FLUOXETINE HYDROCHLORIDE) [Concomitant]
  3. AMANTADINE HCL [Concomitant]

REACTIONS (1)
  - ARTERIAL THROMBOSIS [None]
